FAERS Safety Report 20174662 (Version 2)
Quarter: 2021Q4

REPORT INFORMATION
  Report Type: Spontaneous
  Country: US (occurrence: US)
  Receive Date: 20211213
  Receipt Date: 20211215
  Transmission Date: 20220303
  Serious: No
  Sender: FDA-Public Use
  Company Number: US-GLAXOSMITHKLINE-USCH2021087719

PATIENT

DRUGS (2)
  1. ABREVA [Suspect]
     Active Substance: DOCOSANOL
     Indication: Cheilitis
     Dosage: UNK, 5 TIMES A DAY
  2. ABREVA [Suspect]
     Active Substance: DOCOSANOL
     Indication: Nasal ulcer

REACTIONS (2)
  - Drug effect less than expected [Unknown]
  - Incorrect product administration duration [Unknown]
